FAERS Safety Report 9658058 (Version 3)
Quarter: 2013Q4

REPORT INFORMATION
  Report Type: Report from Study
  Country: US (occurrence: US)
  Receive Date: 20131030
  Receipt Date: 20131126
  Transmission Date: 20140711
  Serious: Yes (Death, Life-Threatening, Hospitalization)
  Sender: FDA-Public Use
  Company Number: US-CELGENEUS-163-C5013-13105045

PATIENT
  Age: 74 Year
  Sex: Female
  Weight: 50 kg

DRUGS (47)
  1. AZACITIDINE INJECTABLE [Suspect]
     Indication: ACUTE MYELOID LEUKAEMIA
     Dosage: 75 MILLIGRAM/SQ. METER
     Route: 058
     Dates: start: 20131005, end: 20131011
  2. ACYCLOVIR [Concomitant]
     Indication: PROPHYLAXIS
     Dosage: 800 MILLIGRAM
     Route: 048
     Dates: start: 20131001, end: 20131022
  3. MELATONIN [Concomitant]
     Indication: INSOMNIA
     Dosage: 3 MILLIGRAM
     Route: 048
     Dates: start: 20131001, end: 20131021
  4. URSODIOL [Concomitant]
     Indication: HEPATIC CIRRHOSIS
     Dosage: 600 MILLIGRAM
     Route: 048
     Dates: start: 1999, end: 20131022
  5. POTASSIUM [Concomitant]
     Indication: SUPPLEMENTATION THERAPY
     Route: 048
     Dates: start: 20131001, end: 20131012
  6. POTASSIUM [Concomitant]
     Route: 041
     Dates: start: 20131001, end: 20131023
  7. NORMAL SALINE [Concomitant]
     Indication: FLUID REPLACEMENT
     Route: 041
     Dates: start: 20131001, end: 20131006
  8. ALLOPURINOL [Concomitant]
     Indication: PROPHYLAXIS
     Dosage: 600 MILLIGRAM
     Route: 048
     Dates: start: 20131001, end: 20131007
  9. ALLOPURINOL [Concomitant]
     Dosage: 300 MILLIGRAM
     Route: 048
     Dates: start: 20131014, end: 20131022
  10. HEPARIN [Concomitant]
     Indication: PROPHYLAXIS
     Dosage: 5000 UNITS
     Route: 058
     Dates: start: 20131001, end: 20131004
  11. TRAMADOL [Concomitant]
     Indication: PAIN
     Dosage: 200 MILLIGRAM
     Route: 048
     Dates: start: 20131001, end: 20131023
  12. LASIX [Concomitant]
     Indication: FLUID OVERLOAD
     Route: 041
     Dates: start: 20130926, end: 20130926
  13. LASIX [Concomitant]
     Indication: OEDEMA
     Route: 041
     Dates: start: 20131002, end: 20131023
  14. MAGNESIUM [Concomitant]
     Indication: SUPPLEMENTATION THERAPY
     Route: 041
     Dates: start: 20131002, end: 20131022
  15. MAGNESIUM OXIDE [Concomitant]
     Indication: SUPPLEMENTATION THERAPY
     Route: 048
     Dates: start: 20131003, end: 20131015
  16. MAGNESIUM LACTATE [Concomitant]
     Indication: SUPPLEMENTATION THERAPY
     Route: 048
     Dates: start: 20131004, end: 20131021
  17. SENOKOT-S [Concomitant]
     Indication: CONSTIPATION
     Route: 048
     Dates: start: 20131002, end: 20131002
  18. MIRALAX [Concomitant]
     Indication: CONSTIPATION
     Dosage: 17 GRAM
     Route: 048
     Dates: start: 20131003, end: 20131012
  19. BISACODYL [Concomitant]
     Indication: CONSTIPATION
     Route: 048
     Dates: start: 20131004, end: 20131005
  20. LACTULOSE [Concomitant]
     Indication: CONSTIPATION
     Dosage: 20 GRAM
     Route: 048
     Dates: start: 20131005, end: 20131022
  21. COLACE [Concomitant]
     Indication: CONSTIPATION
     Route: 048
     Dates: start: 20131010, end: 20131011
  22. CEFEPIME [Concomitant]
     Indication: FEBRILE NEUTROPENIA
     Dosage: 4 GRAM
     Route: 041
     Dates: start: 20131003, end: 20131007
  23. LEVAQUIN [Concomitant]
     Indication: FEBRILE NEUTROPENIA
     Dosage: 375 MILLIGRAM
     Route: 048
     Dates: start: 20131007, end: 20131007
  24. ONDANSETRON [Concomitant]
     Indication: PROPHYLAXIS
     Dosage: 8 MILLIGRAM
     Route: 048
     Dates: start: 20131005, end: 20131011
  25. ONDANSETRON [Concomitant]
     Indication: NAUSEA
     Route: 048
     Dates: start: 20131012, end: 20131021
  26. AMBIEN [Concomitant]
     Indication: INSOMNIA
     Route: 048
     Dates: start: 20131005, end: 20131007
  27. NOXAFIL [Concomitant]
     Indication: PROPHYLAXIS
     Dosage: 600 MILLIGRAM
     Route: 048
     Dates: start: 20131007, end: 20131022
  28. NOXAFIL [Concomitant]
     Route: 048
     Dates: start: 20131012
  29. SENNOSIDES [Concomitant]
     Indication: CONSTIPATION
     Dosage: 11.6 MILLIGRAM
     Route: 048
     Dates: start: 20131010, end: 20131017
  30. MORPHINE [Concomitant]
     Indication: PAIN
     Route: 041
     Dates: start: 20131007, end: 20131007
  31. ALTEPLASE [Concomitant]
     Indication: THROMBOSIS
     Route: 041
     Dates: start: 20131015, end: 20131016
  32. ALTEPLASE [Concomitant]
     Route: 041
     Dates: start: 20131017, end: 20131017
  33. STOMATITIS COCKTAIL [Concomitant]
     Indication: MUCOSAL INFLAMMATION
     Dosage: 30 MILLILITER
     Route: 048
     Dates: start: 20131020, end: 20131022
  34. MIDAZOLAM [Concomitant]
     Indication: ANXIETY
     Route: 041
     Dates: start: 20131023, end: 20131023
  35. FEOSOL [Concomitant]
     Indication: ANAEMIA
     Route: 048
     Dates: start: 20130926, end: 20130930
  36. MACROBID [Concomitant]
     Indication: URINARY TRACT INFECTION
     Dosage: 200 MILLIGRAM
     Route: 048
     Dates: start: 20130926, end: 20130930
  37. PNEUMOVAX [Concomitant]
     Indication: PROPHYLAXIS
     Route: 058
     Dates: start: 20130926, end: 20130926
  38. TYLENOL [Concomitant]
     Indication: PAIN
     Route: 048
     Dates: start: 20130926, end: 20130930
  39. ASPIRIN [Concomitant]
     Indication: PROPHYLAXIS
     Dosage: 81 MILLIGRAM
     Route: 048
     Dates: start: 20130926, end: 20130930
  40. INFLUENZA VACCINE [Concomitant]
     Indication: PROPHYLAXIS
     Route: 058
     Dates: start: 20130926, end: 20130926
  41. BACID [Concomitant]
     Indication: SUPPLEMENTATION THERAPY
     Dosage: 2 CAPSULE
     Route: 048
     Dates: start: 20130926, end: 20130930
  42. BUMETANIDE [Concomitant]
     Indication: OEDEMA
     Dosage: 1 MILLIGRAM
     Route: 041
     Dates: start: 20130928, end: 20130929
  43. BIAXIN [Concomitant]
     Indication: URINARY TRACT INFECTION
     Dosage: 1000 MILLIGRAM
     Route: 041
     Dates: start: 20130927, end: 20130930
  44. TORADOL [Concomitant]
     Indication: PAIN
     Route: 041
     Dates: start: 20130929, end: 20130930
  45. MYLANTA [Concomitant]
     Indication: DYSPEPSIA
     Route: 048
     Dates: start: 20130927, end: 20130928
  46. ZOFRAN [Concomitant]
     Indication: NAUSEA
     Route: 041
     Dates: start: 20130927, end: 20130929
  47. CC-5013 [Suspect]
     Indication: ACUTE MYELOID LEUKAEMIA
     Dosage: 50 MILLIGRAM
     Route: 048
     Dates: start: 20131012, end: 20131022

REACTIONS (1)
  - Neutropenic sepsis [Fatal]
